FAERS Safety Report 9789944 (Version 1)
Quarter: 2013Q4

REPORT INFORMATION
  Report Type: Spontaneous
  Country: US (occurrence: None)
  Receive Date: 20131230
  Receipt Date: 20131230
  Transmission Date: 20140711
  Serious: No
  Sender: FDA-Public Use
  Company Number: None

PATIENT
  Age: 74 Year
  Sex: Male

DRUGS (2)
  1. AFFINITOR [Suspect]
     Indication: METASTASES TO LIVER
     Dosage: ONE TABLET
     Route: 048
     Dates: start: 20131005, end: 20131218
  2. AFFINITOR [Suspect]
     Indication: PANCREATIC CARCINOMA METASTATIC
     Dosage: ONE TABLET
     Route: 048
     Dates: start: 20131005, end: 20131218

REACTIONS (3)
  - Oedema [None]
  - Dyspnoea [None]
  - Stomatitis [None]
